FAERS Safety Report 12856809 (Version 1)
Quarter: 2016Q4

REPORT INFORMATION
  Report Type: Spontaneous
  Country: US (occurrence: US)
  Receive Date: 20161017
  Receipt Date: 20161017
  Transmission Date: 20170207
  Serious: Yes (Hospitalization)
  Sender: FDA-Public Use
  Company Number: None

PATIENT
  Age: 0 Year
  Weight: 90.9 kg

DRUGS (1)
  1. GABAPENTIN. [Suspect]
     Active Substance: GABAPENTIN
     Indication: PAIN
     Route: 048
     Dates: start: 20160624, end: 20160718

REACTIONS (3)
  - Anaemia [None]
  - Leukopenia [None]
  - Thrombocytopenia [None]

NARRATIVE: CASE EVENT DATE: 20160727
